FAERS Safety Report 5233395-X (Version None)
Quarter: 2007Q1

REPORT INFORMATION
  Report Type: 
  Country: None (occurrence: None)
  Receive Date: 20070206
  Receipt Date: 20070123
  Transmission Date: 20070707
  Serious: Yes (Hospitalization)
  Sender: FDA-Public Use
  Company Number: 430049K06USA

PATIENT
  Age: 33 Year
  Sex: Female
  Weight: 69.85 kg

DRUGS (4)
  1. NOVANTRONE [Suspect]
     Indication: MULTIPLE SCLEROSIS
     Dosage: 12 MG/M2, 1 IN 3 MONTHS, INTRAVENOUS (NOT OTHERWISE SPECIFIED)
     Route: 042
     Dates: start: 20050902, end: 20060306
  2. REBIF [Concomitant]
  3. FLOVENT [Concomitant]
  4. VICODIN [Concomitant]

REACTIONS (2)
  - ASTHMA [None]
  - BRONCHOPNEUMONIA [None]
